FAERS Safety Report 10695498 (Version 1)
Quarter: 2014Q4

REPORT INFORMATION
  Report Type: Spontaneous
  Country: US (occurrence: None)
  Receive Date: 20141223
  Receipt Date: 20141223
  Transmission Date: 20150529
  Serious: Yes (Life-Threatening, Other)
  Sender: FDA-Public Use
  Company Number: 390470N

PATIENT
  Age: 62 Year
  Sex: Female
  Weight: 114.3 kg

DRUGS (1)
  1. NOVOLIN 70/30 [Suspect]
     Active Substance: INSULIN HUMAN
     Indication: TYPE 2 DIABETES MELLITUS
     Dosage: 35 UNITS IN AM AN 20 UNITS IN PM
     Route: 058
     Dates: start: 201107

REACTIONS (3)
  - Hypoglycaemic unconsciousness [None]
  - Blood glucose decreased [None]
  - Wrong drug administered [None]

NARRATIVE: CASE EVENT DATE: 20130924
